FAERS Safety Report 8231621-6 (Version None)
Quarter: 2012Q1

REPORT INFORMATION
  Report Type: 
  Country: None (occurrence: None)
  Receive Date: 20120323
  Receipt Date: 20120313
  Transmission Date: 20120608
  Serious: Yes (Hospitalization, Other)
  Sender: FDA-Public Use
  Company Number: US-ELI_LILLY_AND_COMPANY-US201202002702

PATIENT
  Age: 76 Year
  Sex: Male

DRUGS (11)
  1. FORTEO [Suspect]
     Indication: OSTEOPOROSIS
     Dosage: 20 UG, QD
     Route: 065
     Dates: start: 20110101
  2. FORTEO [Suspect]
     Dosage: 20 UG, QD
  3. ASCORBIC ACID [Concomitant]
  4. OMEPRAZOLE [Concomitant]
     Dosage: UNK, QD
  5. ASPIRIN [Concomitant]
     Dosage: 81 MG, UNK
  6. COUMADIN [Concomitant]
     Dosage: 6 MG, (ALSO REPORTED 5 MG)
  7. FUROSEMIDE [Concomitant]
     Dosage: 20 MG, UNK
  8. INSULIN [Concomitant]
  9. CARVEDILOL [Concomitant]
     Indication: CARDIAC DISORDER
  10. LOSARTAN POTASSIUM [Concomitant]
  11. FORTEO [Suspect]
     Dosage: 20 UG, QD

REACTIONS (2)
  - HYPOTENSION [None]
  - COLON CANCER [None]
